FAERS Safety Report 17667230 (Version 2)
Quarter: 2020Q4

REPORT INFORMATION
  Report Type: Report from Study
  Country: None (occurrence: US)
  Receive Date: 20200414
  Receipt Date: 20201126
  Transmission Date: 20210113
  Serious: Yes (Other)
  Sender: FDA-Public Use
  Company Number: US-ABBVIE-20K-163-3362013-00

PATIENT
  Age: 45 Year
  Sex: Female

DRUGS (2)
  1. HUMIRA [Suspect]
     Active Substance: ADALIMUMAB
     Route: 058
  2. HUMIRA [Suspect]
     Active Substance: ADALIMUMAB
     Indication: PRODUCT USED FOR UNKNOWN INDICATION
     Route: 058
     Dates: start: 2015

REACTIONS (4)
  - Ulcer [Recovered/Resolved]
  - Haematochezia [Recovered/Resolved]
  - Breast cancer female [Recovered/Resolved]
  - Intraductal proliferative breast lesion [Unknown]

NARRATIVE: CASE EVENT DATE: 201906
